FAERS Safety Report 11707552 (Version 2)
Quarter: 2016Q1

REPORT INFORMATION
  Report Type: Spontaneous
  Country: AT (occurrence: AT)
  Receive Date: 20151106
  Receipt Date: 20160113
  Transmission Date: 20160525
  Serious: Yes (Other)
  Sender: FDA-Public Use
  Company Number: DE-ASTRAZENECA-2015SE98337

PATIENT
  Sex: Male
  Weight: 79 kg

DRUGS (4)
  1. MAGNESIUM [Concomitant]
     Active Substance: MAGNESIUM
  2. GELENK 1100 [Concomitant]
     Dosage: CONTAINS GLUCOSAMINE SULPHATE 750MG + CHONDROITIN SULPHATE 100MG) ONCE DAILY
  3. SUPRADYN 50+ [Concomitant]
     Dosage: DAILY
  4. ANTRA [Suspect]
     Active Substance: OMEPRAZOLE
     Indication: GASTRITIS
     Route: 048

REACTIONS (8)
  - Abdominal distension [Recovered/Resolved]
  - Abdominal pain upper [Recovered/Resolved]
  - Hepatomegaly [Recovered/Resolved]
  - Decreased appetite [Recovered/Resolved]
  - Irritable bowel syndrome [Recovered/Resolved]
  - Drug ineffective [Recovered/Resolved]
  - Epigastric discomfort [Recovered/Resolved]
  - Abdominal discomfort [Recovered/Resolved]
